FAERS Safety Report 8498765-5 (Version None)
Quarter: 2012Q3

REPORT INFORMATION
  Report Type: 
  Country: None (occurrence: None)
  Receive Date: 20120709
  Receipt Date: 20120629
  Transmission Date: 20120928
  Serious: No
  Sender: FDA-Public Use
  Company Number: US-AMGEN-USASP2012040468

PATIENT
  Age: 49 Year
  Sex: Male

DRUGS (2)
  1. LEFLUNOMIDE [Concomitant]
     Dosage: 1 MG, UNK
  2. ENBREL [Suspect]
     Indication: RHEUMATOID ARTHRITIS
     Dosage: 50 MG, QWK
     Dates: start: 20120423

REACTIONS (3)
  - SPEECH DISORDER [None]
  - HEADACHE [None]
  - DRUG INEFFECTIVE [None]
